FAERS Safety Report 18098821 (Version 2)
Quarter: 2020Q3

REPORT INFORMATION
  Report Type: Spontaneous
  Country: AU (occurrence: AU)
  Receive Date: 20200731
  Receipt Date: 20200910
  Transmission Date: 20201103
  Serious: Yes (Other)
  Sender: FDA-Public Use
  Company Number: AU-PFIZER INC-2020270754

PATIENT
  Age: 38 Year
  Sex: Female

DRUGS (3)
  1. METRONIDAZOLE. [Concomitant]
     Active Substance: METRONIDAZOLE
     Dosage: 500 MG, 2X/DAY (Q12H)
     Route: 042
     Dates: start: 20200713, end: 20200715
  2. CEFAZOLIN [Concomitant]
     Active Substance: CEFAZOLIN
     Dosage: 2 G, 3X/DAY (Q8H)
     Route: 042
     Dates: start: 20200714, end: 20200715
  3. CYTOTEC [Suspect]
     Active Substance: MISOPROSTOL
     Dosage: 800 UG, STAT
     Route: 002
     Dates: start: 20200714, end: 20200714

REACTIONS (5)
  - Chills [Recovered/Resolved]
  - Pyrexia [Recovered/Resolved]
  - Rash [Recovered/Resolved]
  - Hypoaesthesia [Recovered/Resolved]
  - Drug hypersensitivity [Recovered/Resolved]

NARRATIVE: CASE EVENT DATE: 20200714
